FAERS Safety Report 8837315 (Version 2)
Quarter: 2012Q4

REPORT INFORMATION
  Report Type: 
  Country: GB (occurrence: GB)
  Receive Date: 20121012
  Receipt Date: 20121023
  Transmission Date: 20130627
  Serious: Yes (Congenital Anomaly, Other)
  Sender: FDA-Public Use
  Company Number: GB-MYLANLABS-2012S1020363

PATIENT
  Age: 1 Hour
  Sex: Male
  Weight: 2.89 kg

DRUGS (2)
  1. VENLAFAXINE [Suspect]
     Route: 064
     Dates: start: 20110823
  2. FOLIC ACID [Concomitant]
     Indication: PRODUCT USED FOR UNKNOWN INDICATION

REACTIONS (3)
  - Exposure during pregnancy [Unknown]
  - Hypospadias [Not Recovered/Not Resolved]
  - Syndactyly [Not Recovered/Not Resolved]
